FAERS Safety Report 15752202 (Version 1)
Quarter: 2018Q4

REPORT INFORMATION
  Report Type: Spontaneous
  Country: ES (occurrence: ES)
  Receive Date: 20181221
  Receipt Date: 20181221
  Transmission Date: 20190205
  Serious: Yes (Hospitalization)
  Sender: FDA-Public Use
  Company Number: ES-ELI_LILLY_AND_COMPANY-15965825

PATIENT
  Age: 59 Year
  Sex: Female
  Weight: 80 kg

DRUGS (2)
  1. CETUXIMAB. [Suspect]
     Active Substance: CETUXIMAB
     Indication: ADENOCARCINOMA OF COLON
     Dosage: CYCLE :3
     Route: 042
     Dates: start: 201104, end: 20110524
  2. TOVIAZ [Suspect]
     Active Substance: FESOTERODINE FUMARATE
     Indication: URINARY INCONTINENCE
     Dosage: 4MG PROLONGED RELEASE TABLET
     Route: 048
     Dates: start: 2009

REACTIONS (6)
  - Toxicity to various agents [Unknown]
  - Nausea [Unknown]
  - Neutropenia [Unknown]
  - Abdominal pain [Unknown]
  - Diarrhoea [Unknown]
  - Vomiting [Unknown]

NARRATIVE: CASE EVENT DATE: 20110603
